FAERS Safety Report 7703612-2 (Version None)
Quarter: 2011Q3

REPORT INFORMATION
  Report Type: 
  Country: None (occurrence: None)
  Receive Date: 20110823
  Receipt Date: 20110822
  Transmission Date: 20111222
  Serious: Yes (Death)
  Sender: FDA-Public Use
  Company Number: PHFR2011GB01138

PATIENT
  Sex: Male

DRUGS (5)
  1. ALCOHOL [Suspect]
  2. PAROXETINE HCL [Concomitant]
     Indication: DEPRESSION
     Dosage: 20 MG, QD
     Route: 048
  3. ZOLPIDEM [Concomitant]
     Indication: INSOMNIA
     Dosage: 20 MG, QD
     Route: 048
  4. CLOZAPINE [Suspect]
     Indication: SCHIZOPHRENIA
     Dosage: 650 MG, QD
     Route: 048
     Dates: start: 20031114
  5. VALPROATE SODIUM [Concomitant]
     Indication: CONVULSIVE THRESHOLD LOWERED
     Dosage: 800 MG, QD
     Route: 048

REACTIONS (5)
  - EPILEPSY [None]
  - CONVULSION [None]
  - ALCOHOL POISONING [None]
  - WHITE BLOOD CELL COUNT INCREASED [None]
  - NEUTROPHIL COUNT INCREASED [None]
